FAERS Safety Report 23132636 (Version 2)
Quarter: 2023Q4

REPORT INFORMATION
  Report Type: Other
  Country: US (occurrence: None)
  Receive Date: 20231101
  Receipt Date: 20231109
  Transmission Date: 20240110
  Serious: Yes (Other)
  Sender: FDA-Public Use
  Company Number: US-ROCHE-3449334

PATIENT
  Age: 75 Year
  Sex: Male

DRUGS (2)
  1. OCREVUS [Suspect]
     Active Substance: OCRELIZUMAB
     Indication: Primary progressive multiple sclerosis
     Dosage: LAST INFUSION WAS 05/15/2023 AND NEXT ONE IS SCHEDULED FOR 11/17/2023.
     Route: 065
     Dates: start: 20181205
  2. CELLCEPT [Suspect]
     Active Substance: MYCOPHENOLATE MOFETIL
     Indication: Primary progressive multiple sclerosis
     Route: 065

REACTIONS (3)
  - Skin cancer [Unknown]
  - COVID-19 [Unknown]
  - Off label use [Unknown]
